FAERS Safety Report 5160438-4 (Version None)
Quarter: 2006Q4

REPORT INFORMATION
  Report Type: 
  Country: None (occurrence: None)
  Receive Date: 20061121
  Receipt Date: 20061107
  Transmission Date: 20070319
  Serious: Yes (Death, Other)
  Sender: FDA-Public Use
  Company Number: 2006US-04396

PATIENT
  Age: 59 Year
  Sex: Male

DRUGS (2)
  1. ISOTRETINOIN [Suspect]
     Indication: BRAIN NEOPLASM
     Dosage: 160 MG, QD (7 DAY ON, 7 DAY OFF)
     Dates: start: 20051216, end: 20060501
  2. TEMODAR [Concomitant]

REACTIONS (2)
  - NEOPLASM PROGRESSION [None]
  - OFF LABEL USE [None]
